FAERS Safety Report 5281901-1 (Version None)
Quarter: 2007Q1

REPORT INFORMATION
  Report Type: 
  Country: None (occurrence: None)
  Receive Date: 20070330
  Receipt Date: 20070320
  Transmission Date: 20070707
  Serious: Yes (Other)
  Sender: FDA-Public Use
  Company Number: US-ABBOTT-07P-163-0356077-00

PATIENT
  Sex: Female

DRUGS (4)
  1. HUMIRA [Suspect]
     Indication: ANKYLOSING SPONDYLITIS
     Route: 058
     Dates: start: 20031201, end: 20061201
  2. LETROZOLE [Concomitant]
     Indication: ANKYLOSING SPONDYLITIS
  3. PROCHLORPERAZINE EDISYLATE [Concomitant]
     Indication: DRUG USE FOR UNKNOWN INDICATION
  4. LEVOTHYROXINE SODIUM [Concomitant]
     Indication: DRUG USE FOR UNKNOWN INDICATION
     Route: 048

REACTIONS (6)
  - ARTHRALGIA [None]
  - CHRONIC MYELOID LEUKAEMIA [None]
  - DNA ANTIBODY POSITIVE [None]
  - HAEMATURIA [None]
  - JOINT EFFUSION [None]
  - MUSCULOSKELETAL STIFFNESS [None]
